FAERS Safety Report 20618724 (Version 2)
Quarter: 2022Q1

REPORT INFORMATION
  Report Type: Spontaneous
  Country: AU (occurrence: AU)
  Receive Date: 20220322
  Receipt Date: 20220328
  Transmission Date: 20220424
  Serious: Yes (Other)
  Sender: FDA-Public Use
  Company Number: AU-AMGEN-AUSSP2022046609

PATIENT
  Age: 81 Year
  Sex: Male

DRUGS (3)
  1. NEULASTA [Suspect]
     Active Substance: PEGFILGRASTIM
     Indication: White blood cell count decreased
     Dosage: 6 MILLIGRAM PER MILLILITRE, Q3WK (AFTER CHEMO)
     Route: 058
     Dates: start: 20220203
  2. ERGOCALCIFEROL [Concomitant]
     Active Substance: ERGOCALCIFEROL
     Dosage: UNK, QD
  3. FOLIC ACID [Concomitant]
     Active Substance: FOLIC ACID
     Dosage: UNK, QD

REACTIONS (4)
  - Deep vein thrombosis [Unknown]
  - Joint swelling [Unknown]
  - Pain [Unknown]
  - Inappropriate schedule of product administration [Unknown]

NARRATIVE: CASE EVENT DATE: 20220203
